FAERS Safety Report 8479621-5 (Version None)
Quarter: 2012Q2

REPORT INFORMATION
  Report Type: 
  Country: None (occurrence: None)
  Receive Date: 20120629
  Receipt Date: 20120625
  Transmission Date: 20120825
  Serious: No
  Sender: FDA-Public Use
  Company Number: US-PFIZER INC-2012153503

PATIENT
  Age: 48 Year
  Sex: Male

DRUGS (4)
  1. AVINZA [Suspect]
     Indication: NERVE COMPRESSION
     Dosage: 120 MG, 2X/DAY
     Dates: end: 20120601
  2. AVINZA [Suspect]
     Indication: SCIATICA
  3. AVINZA [Suspect]
     Indication: MUSCLE SPASMS
  4. AVINZA [Suspect]
     Indication: BACK PAIN
     Dosage: 120 MG, DAILY
     Dates: start: 20100101

REACTIONS (3)
  - ABNORMAL DREAMS [None]
  - FEELING ABNORMAL [None]
  - THERAPEUTIC RESPONSE DECREASED [None]
